FAERS Safety Report 6712992-6 (Version None)
Quarter: 2010Q2

REPORT INFORMATION
  Report Type: 
  Country: None (occurrence: None)
  Receive Date: 20100505
  Receipt Date: 20100505
  Transmission Date: 20101027
  Serious: Yes (Other)
  Sender: FDA-Public Use
  Company Number: None

PATIENT
  Sex: Male
  Weight: 90 kg

DRUGS (19)
  1. CHLORHEXIDINE GLUCONATE [Suspect]
     Indication: POSTOPERATIVE CARE
     Dates: start: 20100302, end: 20100303
  2. CARDIZEM [Concomitant]
  3. MAGNESIUM [Concomitant]
  4. MVI IN NS500ML [Concomitant]
  5. METOPROLOL TARTRATE [Concomitant]
  6. ASPIRIN [Concomitant]
  7. MORPHINE [Concomitant]
  8. ATIVAN [Concomitant]
  9. INSULIN ASPART [Concomitant]
  10. HYDROMORPHONE HCL [Concomitant]
  11. CEFAZOLIN [Concomitant]
  12. NEXIUM [Concomitant]
  13. PROPOFOL INFUSION [Concomitant]
  14. ALBUMIN (HUMAN) [Concomitant]
  15. PHENYLEPHRINE [Concomitant]
  16. POTASSIUM PHOSPHATES [Concomitant]
  17. NOREPINEPRHINE [Concomitant]
  18. ATIVAN [Concomitant]
  19. MEPERIDINE HCL [Concomitant]

REACTIONS (2)
  - LIP OEDEMA [None]
  - TONGUE OEDEMA [None]
